FAERS Safety Report 10172336 (Version 2)
Quarter: 2014Q2

REPORT INFORMATION
  Report Type: Spontaneous
  Country: US (occurrence: US)
  Receive Date: 20140515
  Receipt Date: 20140520
  Transmission Date: 20141212
  Serious: Yes (Hospitalization)
  Sender: FDA-Public Use
  Company Number: US-JNJFOC-20140506404

PATIENT
  Age: 55 Year
  Sex: Female
  Weight: 41 kg

DRUGS (6)
  1. OLYSIO [Suspect]
     Indication: HEPATITIS C
     Route: 065
     Dates: start: 20140425, end: 20140508
  2. OLYSIO [Suspect]
     Indication: HEPATITIS C
     Route: 065
     Dates: start: 20140511
  3. SOVALDI [Concomitant]
     Indication: HEPATITIS C
     Route: 065
     Dates: start: 20140511
  4. SOVALDI [Concomitant]
     Indication: HEPATITIS C
     Route: 065
     Dates: start: 20140425, end: 20140508
  5. LANTUS [Concomitant]
     Indication: DIABETES MELLITUS
  6. SEROQUEL [Concomitant]

REACTIONS (5)
  - Nausea [Unknown]
  - Vomiting [Unknown]
  - Pneumatosis [Not Recovered/Not Resolved]
  - Drug dose omission [Recovered/Resolved]
  - Off label use [Unknown]
